FAERS Safety Report 23774867 (Version 2)
Quarter: 2025Q3

REPORT INFORMATION
  Report Type: Report from Study
  Country: CA (occurrence: CA)
  Receive Date: 20240423
  Receipt Date: 20250828
  Transmission Date: 20251021
  Serious: Yes (Other)
  Sender: SANDOZ
  Company Number: CA-SANDOZ-SDZ2024CA041850

PATIENT
  Sex: Male

DRUGS (2)
  1. HYRIMOZ [Suspect]
     Active Substance: ADALIMUMAB-ADAZ
     Indication: Ankylosing spondylitis
     Dosage: 40 MG, QW (40 MG / 0.8 ML)
     Route: 058
     Dates: start: 20231016
  2. HYRIMOZ [Suspect]
     Active Substance: ADALIMUMAB-ADAZ
     Dosage: 40MG SC EVERY 3 WEEKS
     Route: 058
     Dates: start: 20231016

REACTIONS (3)
  - Uveitis [Unknown]
  - Blood disorder [Unknown]
  - Off label use [Unknown]
